FAERS Safety Report 16240943 (Version 1)
Quarter: 2019Q2

REPORT INFORMATION
  Report Type: Spontaneous
  Country: KR (occurrence: KR)
  Receive Date: 20190425
  Receipt Date: 20190425
  Transmission Date: 20190711
  Serious: Yes (Other)
  Sender: FDA-Public Use
  Company Number: KR-ALLERGAN-1917435US

PATIENT
  Age: 4 Decade
  Sex: Male

DRUGS (6)
  1. OZURDEX [Suspect]
     Active Substance: DEXAMETHASONE
     Indication: RETINOPATHY PROLIFERATIVE
     Dosage: 0.7 MG, SINGLE
     Route: 031
  2. OZURDEX [Suspect]
     Active Substance: DEXAMETHASONE
     Indication: DERMATITIS ATOPIC
     Dosage: 0.7 MG, SINGLE
     Route: 031
  3. SILICONE OIL TAMPONADE [Suspect]
     Active Substance: DIMETHICONE
     Indication: RETINAL DETACHMENT
  4. SILICONE OIL TAMPONADE [Suspect]
     Active Substance: DIMETHICONE
     Indication: RETINOPATHY PROLIFERATIVE
  5. OZURDEX [Suspect]
     Active Substance: DEXAMETHASONE
     Indication: RETINAL DETACHMENT
  6. SILICONE OIL TAMPONADE [Suspect]
     Active Substance: DIMETHICONE
     Indication: DERMATITIS ATOPIC
     Dosage: UNK
     Route: 065

REACTIONS (5)
  - Glaucoma [Unknown]
  - Intraocular pressure increased [Unknown]
  - Off label use [Unknown]
  - Visual acuity reduced [Unknown]
  - Herpes ophthalmic [Unknown]
